FAERS Safety Report 18682459 (Version 1)
Quarter: 2020Q4

REPORT INFORMATION
  Report Type: Report from Study
  Country: US (occurrence: US)
  Receive Date: 20201230
  Receipt Date: 20201230
  Transmission Date: 20210114
  Serious: No
  Sender: FDA-Public Use
  Company Number: US-ACADIA PHARMACEUTICALS INC.-ACA-2020-PIM-003945

PATIENT
  Sex: Male
  Weight: 72 kg

DRUGS (16)
  1. ARICEPT [Concomitant]
     Active Substance: DONEPEZIL HYDROCHLORIDE
  2. TAMSULOSIN [Concomitant]
     Active Substance: TAMSULOSIN
  3. WELLBUTRIN [Concomitant]
     Active Substance: BUPROPION HYDROCHLORIDE
  4. NOURIANZ [Suspect]
     Active Substance: ISTRADEFYLLINE
     Indication: TREMOR
     Dosage: 40 MILLIGRAM, QD (AT NIGHT)
     Route: 048
     Dates: start: 202009, end: 202009
  5. DOCUSATE [Concomitant]
     Active Substance: DOCUSATE
  6. SYNTHROID [Concomitant]
     Active Substance: LEVOTHYROXINE SODIUM
  7. GOCOVRI [Suspect]
     Active Substance: AMANTADINE
     Dosage: 274 MILLIGRAM, QD (AT BEDTIME)
     Route: 048
     Dates: start: 20201012
  8. METFORMIN [Concomitant]
     Active Substance: METFORMIN HYDROCHLORIDE
  9. CYMBALTA [Concomitant]
     Active Substance: DULOXETINE HYDROCHLORIDE
  10. OMEPRAZOLE. [Concomitant]
     Active Substance: OMEPRAZOLE
  11. LIPITOR [Concomitant]
     Active Substance: ATORVASTATIN CALCIUM
  12. MIDODRINE [Concomitant]
     Active Substance: MIDODRINE
  13. NUPLAZID [Suspect]
     Active Substance: PIMAVANSERIN TARTRATE
     Dosage: UNK, UNK
     Route: 065
     Dates: start: 2020, end: 202010
  14. GOCOVRI [Suspect]
     Active Substance: AMANTADINE
     Indication: DYSKINESIA
     Dosage: 274 MILLIGRAM, QD (AT BEDTIME)
     Route: 048
     Dates: start: 20200806, end: 202009
  15. NOURIANZ [Suspect]
     Active Substance: ISTRADEFYLLINE
     Dosage: 40 MILLIGRAM, QD (AT NIGHT)
     Route: 048
     Dates: start: 202009
  16. SINEMET [Concomitant]
     Active Substance: CARBIDOPA\LEVODOPA

REACTIONS (1)
  - Hallucination, visual [Unknown]

NARRATIVE: CASE EVENT DATE: 2020
